FAERS Safety Report 9826472 (Version 1)
Quarter: 2014Q1

REPORT INFORMATION
  Report Type: Spontaneous
  Country: US (occurrence: US)
  Receive Date: 20140117
  Receipt Date: 20140117
  Transmission Date: 20141002
  Serious: No
  Sender: FDA-Public Use
  Company Number: US-BIOGENIDEC-2014BI000446

PATIENT
  Sex: Female

DRUGS (7)
  1. TECFIDERA [Suspect]
     Indication: MULTIPLE SCLEROSIS
     Route: 048
  2. WELLBUTRIN [Concomitant]
  3. GRALISE [Concomitant]
  4. VITAMIN D3 [Concomitant]
  5. VITAMIN E [Concomitant]
  6. XANAX [Concomitant]
  7. RELASEN [Concomitant]

REACTIONS (3)
  - Mood altered [Unknown]
  - Personality change [Unknown]
  - Abdominal pain upper [Unknown]
